FAERS Safety Report 6608122-1 (Version None)
Quarter: 2010Q1

REPORT INFORMATION
  Report Type: 
  Country: None (occurrence: None)
  Receive Date: 20100301
  Receipt Date: 20100222
  Transmission Date: 20100710
  Serious: Yes (Death)
  Sender: FDA-Public Use
  Company Number: CHPA2010US03834

PATIENT
  Age: 50 Year
  Sex: Female

DRUGS (8)
  1. DIPHENHYDRAMINE (NCH) [Suspect]
  2. ACETAMINOPHEN W/ PROPOXYPHENE HCL [Suspect]
  3. MORPHINE [Suspect]
  4. SERTRALINE HCL [Suspect]
  5. MEPROBAMATE [Suspect]
  6. HYDROMORPHONE [Suspect]
  7. ALPRAZOLAM [Suspect]
  8. ACETAMINOPHEN AND HYDROCODONE BITARTRATE [Suspect]

REACTIONS (1)
  - DEATH [None]
